FAERS Safety Report 9094478 (Version 4)
Quarter: 2013Q3

REPORT INFORMATION
  Report Type: Spontaneous
  Country: US (occurrence: US)
  Receive Date: 20130218
  Receipt Date: 20130729
  Transmission Date: 20140515
  Serious: Yes (Other)
  Sender: FDA-Public Use
  Company Number: US-ROCHE-748873

PATIENT
  Age: 33 Year
  Sex: Male
  Weight: 55.84 kg

DRUGS (2)
  1. ACCUTANE [Suspect]
     Indication: ACNE
     Route: 065
     Dates: start: 19920903, end: 19921231
  2. ACCUTANE [Suspect]
     Route: 065
     Dates: start: 19920903, end: 19930318

REACTIONS (12)
  - Crohn^s disease [Unknown]
  - Inflammatory bowel disease [Unknown]
  - Anal abscess [Unknown]
  - Gout [Unknown]
  - Osteoporosis [Unknown]
  - Depression [Unknown]
  - Hypovitaminosis [Unknown]
  - Intestinal obstruction [Unknown]
  - Haemorrhoids [Unknown]
  - Rectal fissure [Unknown]
  - Suicidal ideation [Unknown]
  - Emotional distress [Unknown]
